FAERS Safety Report 21808248 (Version 1)
Quarter: 2023Q1

REPORT INFORMATION
  Report Type: Spontaneous
  Country: IN (occurrence: IN)
  Receive Date: 20230103
  Receipt Date: 20230103
  Transmission Date: 20230418
  Serious: Yes (Other)
  Sender: FDA-Public Use
  Company Number: IN-SUN PHARMACEUTICAL INDUSTRIES LTD-2022R1-371269

PATIENT
  Sex: Female

DRUGS (1)
  1. PHENYTOIN [Suspect]
     Active Substance: PHENYTOIN
     Indication: Seizure
     Dosage: UNK
     Route: 065

REACTIONS (9)
  - Toxicity to various agents [Unknown]
  - Gingival hypertrophy [Unknown]
  - Knee deformity [Not Recovered/Not Resolved]
  - Rickets [Unknown]
  - Dwarfism [Unknown]
  - Hyporeflexia [Unknown]
  - Central hypothyroidism [Unknown]
  - Cerebellar atrophy [Unknown]
  - Dry skin [Unknown]
